FAERS Safety Report 7988102-4 (Version None)
Quarter: 2011Q4

REPORT INFORMATION
  Report Type: 
  Country: None (occurrence: None)
  Receive Date: 20111216
  Receipt Date: 20110603
  Transmission Date: 20120403
  Serious: No
  Sender: FDA-Public Use
  Company Number: US-BRISTOL-MYERS SQUIBB COMPANY-15803471

PATIENT
  Age: 11 Year
  Sex: Female

DRUGS (1)
  1. ABILIFY [Suspect]
     Dosage: DOSE REDUCED TO 10 THEN TO 5 THEN TO 2 FINALLY DISCONT.

REACTIONS (1)
  - WEIGHT INCREASED [None]
